FAERS Safety Report 25292839 (Version 2)
Quarter: 2025Q2

REPORT INFORMATION
  Report Type: Spontaneous
  Country: US (occurrence: US)
  Receive Date: 20250510
  Receipt Date: 20250510
  Transmission Date: 20250717
  Serious: No
  Sender: SANOFI AVENTIS
  Company Number: US-SA-2025SA123402

PATIENT
  Age: 12 Year
  Sex: Male

DRUGS (1)
  1. DUPIXENT [Suspect]
     Active Substance: DUPILUMAB
     Indication: Eosinophilic oesophagitis
     Dosage: 300 MG, QOW
     Route: 058
     Dates: start: 202504

REACTIONS (8)
  - Eye discharge [Unknown]
  - Pain [Unknown]
  - Respiratory tract congestion [Unknown]
  - Ear pain [Unknown]
  - Mental disorder [Unknown]
  - General physical health deterioration [Unknown]
  - Oropharyngeal pain [Unknown]
  - Conjunctivitis [Unknown]

NARRATIVE: CASE EVENT DATE: 20250401
